FAERS Safety Report 20331648 (Version 1)
Quarter: 2022Q1

REPORT INFORMATION
  Report Type: Spontaneous
  Country: US (occurrence: None)
  Receive Date: 20220112
  Receipt Date: 20220112
  Transmission Date: 20220423
  Serious: No
  Sender: FDA-Public Use
  Company Number: None

PATIENT
  Age: 45 Year
  Sex: Female
  Weight: 50 kg

DRUGS (5)
  1. TAMOXIFEN [Suspect]
     Active Substance: TAMOXIFEN
     Indication: Breast cancer
     Dosage: FREQUENCY : DAILY;?
     Route: 048
     Dates: start: 20210929
  2. LOPERAMIDE [Concomitant]
     Active Substance: LOPERAMIDE
  3. VITAMIN D [Concomitant]
     Active Substance: VITAMIN D NOS
  4. BIOTIN [Concomitant]
     Active Substance: BIOTIN
  5. Nerlynx 40mg [Concomitant]

REACTIONS (2)
  - Diarrhoea [None]
  - Epistaxis [None]

NARRATIVE: CASE EVENT DATE: 20220111
